FAERS Safety Report 19588252 (Version 1)
Quarter: 2021Q3

REPORT INFORMATION
  Report Type: Spontaneous
  Country: US (occurrence: US)
  Receive Date: 20210721
  Receipt Date: 20210721
  Transmission Date: 20211014
  Serious: Yes (Other)
  Sender: FDA-Public Use
  Company Number: US-GLAXOSMITHKLINE-US2021GSK153628

PATIENT
  Sex: Male

DRUGS (4)
  1. RANITIDINE. [Suspect]
     Active Substance: RANITIDINE
     Indication: INTESTINAL PERFORATION
     Dosage: UNK
     Route: 065
     Dates: start: 200801, end: 202001
  2. ZANTAC [Suspect]
     Active Substance: RANITIDINE HYDROCHLORIDE
     Indication: INTESTINAL PERFORATION
     Dosage: UNK
     Route: 065
     Dates: start: 200801, end: 202001
  3. RANITIDINE. [Suspect]
     Active Substance: RANITIDINE
     Indication: INTESTINAL PERFORATION
     Dosage: UNK
     Route: 065
     Dates: start: 200801, end: 202001
  4. ZANTAC [Suspect]
     Active Substance: RANITIDINE HYDROCHLORIDE
     Indication: INTESTINAL PERFORATION
     Dosage: UNK
     Route: 065
     Dates: start: 200801, end: 202001

REACTIONS (1)
  - Bladder cancer [Unknown]
